FAERS Safety Report 21475807 (Version 3)
Quarter: 2023Q2

REPORT INFORMATION
  Report Type: Report from Study
  Country: CO (occurrence: CO)
  Receive Date: 20221019
  Receipt Date: 20230629
  Transmission Date: 20230721
  Serious: Yes (Hospitalization, Other)
  Sender: FDA-Public Use
  Company Number: CO-NOVARTISPH-NVSC2022CO211781

PATIENT
  Sex: Male

DRUGS (3)
  1. COSENTYX [Suspect]
     Active Substance: SECUKINUMAB
     Indication: Psoriatic arthropathy
     Dosage: 300 MG, QMO (AMPOULE FORMULATION)
     Route: 058
  2. COSENTYX [Suspect]
     Active Substance: SECUKINUMAB
     Dosage: 300 MG, QW
     Route: 058
  3. COSENTYX [Suspect]
     Active Substance: SECUKINUMAB
     Dosage: 300 MG, QMO
     Route: 058

REACTIONS (22)
  - Nephrolithiasis [Unknown]
  - Procedural haemorrhage [Unknown]
  - Sensory loss [Unknown]
  - Blister [Unknown]
  - Blister rupture [Unknown]
  - Pain [Unknown]
  - Rash [Unknown]
  - Glycosylated haemoglobin abnormal [Unknown]
  - Hepatic steatosis [Unknown]
  - Obesity [Unknown]
  - Dyslipidaemia [Unknown]
  - Malaise [Unknown]
  - Skin lesion [Recovering/Resolving]
  - Arthralgia [Unknown]
  - Genital lesion [Recovering/Resolving]
  - Genital candidiasis [Unknown]
  - Skin candida [Unknown]
  - Myalgia [Unknown]
  - Dysgraphia [Unknown]
  - Gait disturbance [Unknown]
  - Product prescribing error [Unknown]
  - Drug ineffective [Unknown]
